FAERS Safety Report 8476400-X (Version None)
Quarter: 2012Q2

REPORT INFORMATION
  Report Type: 
  Country: None (occurrence: None)
  Receive Date: 20120622
  Receipt Date: 20120613
  Transmission Date: 20120825
  Serious: Yes (Other)
  Sender: FDA-Public Use
  Company Number: 2012SP033049

PATIENT

DRUGS (1)
  1. TEMODAL [Suspect]
     Indication: GLIOMA

REACTIONS (1)
  - VASCULAR OCCLUSION [None]
